FAERS Safety Report 19458998 (Version 3)
Quarter: 2021Q3

REPORT INFORMATION
  Report Type: Spontaneous
  Country: DE (occurrence: DE)
  Receive Date: 20210624
  Receipt Date: 20210712
  Transmission Date: 20211014
  Serious: Yes (Death, Hospitalization, Other)
  Sender: FDA-Public Use
  Company Number: DE-VELOXIS PHARMACEUTICALS-2021VELDE-000427

PATIENT
  Age: 59 Year
  Sex: Female

DRUGS (16)
  1. PREDNISOLONE. [Suspect]
     Active Substance: PREDNISOLONE
     Dosage: 500 MILLIGRAM FROM DAY 42?46
     Route: 042
  2. PREDNISOLONE. [Suspect]
     Active Substance: PREDNISOLONE
     Dosage: 100 MILLIGRAM, QD ON DAY 85
     Route: 042
  3. PREDNISOLONE. [Suspect]
     Active Substance: PREDNISOLONE
     Dosage: 500 MILLIGRAM, QD ON DAY 85
     Route: 042
  4. POLATUZUMAB VEDOTIN. [Suspect]
     Active Substance: POLATUZUMAB VEDOTIN
     Indication: B-CELL LYMPHOMA
     Dosage: 1.8 MILLIGRAM/KILOGRAM D1 OF CYCLE 1?6
     Route: 065
  5. TOCILIZUMAB. [Suspect]
     Active Substance: TOCILIZUMAB
     Indication: IMMUNOSUPPRESSANT DRUG THERAPY
     Dosage: 3000 MILLIGRAM ON DAY 44 AND DAY 85
     Route: 042
  6. PREDNISOLONE. [Suspect]
     Active Substance: PREDNISOLONE
     Dosage: TAPERED DOWN FROM 500 MG TO 200 MG/DAY IN DAYS 90?90
     Route: 042
  7. PREDNISOLONE. [Suspect]
     Active Substance: PREDNISOLONE
     Dosage: 500 MILLIGRAM, QD ON DAY 41
     Route: 042
  8. OBINUTUZUMAB. [Suspect]
     Active Substance: OBINUTUZUMAB
     Indication: B-CELL LYMPHOMA
     Dosage: 1000 MILLIGRAM (D1, D8, D15 OF C1; D1 OF C2?6)
     Route: 065
  9. ATEZOLIZUMAB. [Suspect]
     Active Substance: ATEZOLIZUMAB
     Indication: B-CELL LYMPHOMA
     Dosage: 1200 MILLIGRAM (D1 OF C2?6)
     Route: 065
  10. BUDESONIDE. [Suspect]
     Active Substance: BUDESONIDE
     Indication: IMMUNOSUPPRESSANT DRUG THERAPY
     Dosage: 250 MG/ML
     Route: 050
  11. ENVARSUS XR [Suspect]
     Active Substance: TACROLIMUS
     Indication: IMMUNOSUPPRESSANT DRUG THERAPY
     Dosage: 4 MILLIGRAM ON DAY 56
     Route: 048
  12. PREDNISOLONE. [Suspect]
     Active Substance: PREDNISOLONE
     Dosage: 500 MILLIGRAM, QD ON DAY 50
     Route: 042
  13. ENVARSUS XR [Suspect]
     Active Substance: TACROLIMUS
     Dosage: 2 MILLIGRAM TAPERED DOWN ON DAY 61
     Route: 048
  14. PREDNISOLONE. [Suspect]
     Active Substance: PREDNISOLONE
     Indication: IMMUNOSUPPRESSANT DRUG THERAPY
     Dosage: TAPERED DOWN FROM 500 MG TO 80 MG ON DAY 51 TO 58 AND THEN TAPERED DOWN TO 60 MG ON DAY 76
     Route: 042
  15. PREDNISOLONE. [Suspect]
     Active Substance: PREDNISOLONE
     Dosage: 20 MILLIGRAM, QD FROM DAY 47?48
     Route: 042
  16. BENDAMUSTINE [Suspect]
     Active Substance: BENDAMUSTINE
     Indication: B-CELL LYMPHOMA
     Dosage: UNK
     Route: 065
     Dates: start: 2017

REACTIONS (11)
  - Erythema [Fatal]
  - Pulmonary embolism [Fatal]
  - Stomatitis [Fatal]
  - Cytomegalovirus infection [Fatal]
  - Conjunctivitis [Fatal]
  - Disease progression [Fatal]
  - Guillain-Barre syndrome [Fatal]
  - Bronchopulmonary aspergillosis [Fatal]
  - Pneumonitis [Fatal]
  - Transaminases increased [Fatal]
  - Product use in unapproved indication [Fatal]
